FAERS Safety Report 8225059-5 (Version None)
Quarter: 2012Q1

REPORT INFORMATION
  Report Type: 
  Country: None (occurrence: None)
  Receive Date: 20120307
  Receipt Date: 20090629
  Transmission Date: 20120608
  Serious: No
  Sender: FDA-Public Use
  Company Number: PHEH2009US06013

PATIENT
  Age: 38 Year
  Sex: Male
  Weight: 120.2 kg

DRUGS (20)
  1. CLONIDINE [Concomitant]
  2. ENABLEX [Concomitant]
  3. COUMADIN [Concomitant]
  4. BACLOFEN [Concomitant]
  5. VALIUM [Concomitant]
  6. POTASSIUM CITRATE [Concomitant]
  7. AFINITOR [Suspect]
     Indication: RENAL CANCER
     Dosage: 10 MG , QD, ORAL
     Route: 048
     Dates: start: 20090424
  8. MALIGNANT NEOPLASM OF KIDNEY (RENAL CANCER) [Concomitant]
  9. FIBERCON (POLYCARBOPHIL CALCIUM) (POLYCARBOPHIL CALCIUM) [Concomitant]
  10. VITAMIN TAB [Concomitant]
  11. ICAPS (MINERALS NOS, VITAMINS NOS [Concomitant]
  12. FLOMAX [Concomitant]
  13. POTASSIUM CITRATE [Concomitant]
  14. CLARITIN [Concomitant]
  15. MIRALAX [Concomitant]
  16. ZANAFLEX [Concomitant]
  17. PROSCAR [Concomitant]
  18. CLONAZEPAM [Concomitant]
  19. LORTAB [Concomitant]
  20. LAXATIVES (NO INGREDIENTS/SUBSTANCES) [Concomitant]

REACTIONS (3)
  - RASH [None]
  - RASH PRURITIC [None]
  - RASH PAPULAR [None]
